FAERS Safety Report 15553626 (Version 1)
Quarter: 2020Q3

REPORT INFORMATION
  Report Type: Spontaneous
  Country: IT (occurrence: IT)
  Receive Date: 20181026
  Receipt Date: 20181026
  Transmission Date: 20201104
  Serious: Yes (Disabling)
  Sender: FDA-Public Use
  Company Number: IT-SUN PHARMACEUTICAL INDUSTRIES LTD-2018RR-189271

PATIENT
  Age: 50 Year
  Sex: Female

DRUGS (10)
  1. EXEMESTANE ACCORD HEALTHCARE 25 MG COMPRESSE RIVESTITE CON FILM [Concomitant]
     Indication: BREAST CANCER METASTATIC
     Route: 048
     Dates: start: 20170928, end: 20180925
  2. CAPECITABINE. [Concomitant]
     Active Substance: CAPECITABINE
     Indication: BREAST CANCER METASTATIC
     Dosage: ()
     Route: 048
     Dates: start: 20170101, end: 20170831
  3. XGEVA [Suspect]
     Active Substance: DENOSUMAB
     Indication: BREAST CANCER METASTATIC
     Route: 058
     Dates: start: 20131201, end: 20180701
  4. TAMOXIFEN CITRATE. [Concomitant]
     Active Substance: TAMOXIFEN CITRATE
     Indication: BREAST CANCER
     Dosage: ()
     Route: 048
     Dates: start: 20130325, end: 20131223
  5. TAXOL [Concomitant]
     Active Substance: PACLITAXEL
     Indication: BREAST CANCER METASTATIC
     Dosage: ()
     Route: 042
     Dates: start: 20170928, end: 20180314
  6. LETROZOLE. [Concomitant]
     Active Substance: LETROZOLE
     Indication: BREAST CANCER METASTATIC
     Route: 048
     Dates: start: 20131201, end: 20160801
  7. IBANDRONIC ACID. [Suspect]
     Active Substance: IBANDRONIC ACID
     Indication: BREAST CANCER METASTATIC
     Dosage: ()
     Route: 065
     Dates: start: 20131201, end: 20131201
  8. FULVESTRANT. [Concomitant]
     Active Substance: FULVESTRANT
     Indication: BREAST CANCER METASTATIC
     Route: 065
     Dates: start: 20160901, end: 20170131
  9. AVASTIN [Suspect]
     Active Substance: BEVACIZUMAB
     Indication: BREAST CANCER METASTATIC
     Dosage: ()
     Route: 042
     Dates: start: 20170928, end: 20180920
  10. DECAPEPTYL (TRIPTORELIN) [Concomitant]
     Active Substance: TRIPTORELIN
     Indication: BREAST CANCER METASTATIC
     Route: 058
     Dates: start: 20130325, end: 20180925

REACTIONS (2)
  - Osteonecrosis of jaw [Not Recovered/Not Resolved]
  - Sinusitis [Not Recovered/Not Resolved]

NARRATIVE: CASE EVENT DATE: 20180601
